FAERS Safety Report 20228434 (Version 2)
Quarter: 2022Q1

REPORT INFORMATION
  Report Type: Report from Study
  Country: SE (occurrence: SE)
  Receive Date: 20211224
  Receipt Date: 20220223
  Transmission Date: 20220423
  Serious: Yes (Other)
  Sender: FDA-Public Use
  Company Number: SE-TAKEDA-2021TUS081319

PATIENT
  Age: 56 Year
  Sex: Female

DRUGS (40)
  1. TEDUGLUTIDE [Suspect]
     Active Substance: TEDUGLUTIDE
     Indication: Short-bowel syndrome
     Dosage: 1.700 MILLIGRAM, QD (0.0200 MG/KG)
     Route: 065
     Dates: start: 20191029, end: 20191030
  2. TEDUGLUTIDE [Suspect]
     Active Substance: TEDUGLUTIDE
     Indication: Short-bowel syndrome
     Dosage: 1.700 MILLIGRAM, QD (0.0200 MG/KG)
     Route: 065
     Dates: start: 20191029, end: 20191030
  3. TEDUGLUTIDE [Suspect]
     Active Substance: TEDUGLUTIDE
     Indication: Short-bowel syndrome
     Dosage: 1.700 MILLIGRAM, QD (0.0200 MG/KG)
     Route: 065
     Dates: start: 20191029, end: 20191030
  4. TEDUGLUTIDE [Suspect]
     Active Substance: TEDUGLUTIDE
     Indication: Short-bowel syndrome
     Dosage: 1.700 MILLIGRAM, QD (0.0200 MG/KG)
     Route: 065
     Dates: start: 20191029, end: 20191030
  5. TEDUGLUTIDE [Suspect]
     Active Substance: TEDUGLUTIDE
     Dosage: 1.700 MILLIGRAM, QD (0.0200 MG/KG)
     Route: 065
     Dates: start: 20191030, end: 20191030
  6. TEDUGLUTIDE [Suspect]
     Active Substance: TEDUGLUTIDE
     Dosage: 1.700 MILLIGRAM, QD (0.0200 MG/KG)
     Route: 065
     Dates: start: 20191030, end: 20191030
  7. TEDUGLUTIDE [Suspect]
     Active Substance: TEDUGLUTIDE
     Dosage: 1.700 MILLIGRAM, QD (0.0200 MG/KG)
     Route: 065
     Dates: start: 20191030, end: 20191030
  8. TEDUGLUTIDE [Suspect]
     Active Substance: TEDUGLUTIDE
     Dosage: 1.700 MILLIGRAM, QD (0.0200 MG/KG)
     Route: 065
     Dates: start: 20191030, end: 20191030
  9. TEDUGLUTIDE [Suspect]
     Active Substance: TEDUGLUTIDE
     Dosage: 2 MILLIGRAM, QD (0.0300 MG/KG)
     Route: 065
     Dates: start: 20191031, end: 20191101
  10. TEDUGLUTIDE [Suspect]
     Active Substance: TEDUGLUTIDE
     Dosage: 2 MILLIGRAM, QD (0.0300 MG/KG)
     Route: 065
     Dates: start: 20191031, end: 20191101
  11. TEDUGLUTIDE [Suspect]
     Active Substance: TEDUGLUTIDE
     Dosage: 2 MILLIGRAM, QD (0.0300 MG/KG)
     Route: 065
     Dates: start: 20191031, end: 20191101
  12. TEDUGLUTIDE [Suspect]
     Active Substance: TEDUGLUTIDE
     Dosage: 2 MILLIGRAM, QD (0.0300 MG/KG)
     Route: 065
     Dates: start: 20191031, end: 20191101
  13. TEDUGLUTIDE [Suspect]
     Active Substance: TEDUGLUTIDE
     Dosage: 2 MILLIGRAM, QD (0.0300 MG/KG)
     Route: 065
     Dates: start: 20191101, end: 20191101
  14. TEDUGLUTIDE [Suspect]
     Active Substance: TEDUGLUTIDE
     Dosage: 2 MILLIGRAM, QD (0.0300 MG/KG)
     Route: 065
     Dates: start: 20191101, end: 20191101
  15. TEDUGLUTIDE [Suspect]
     Active Substance: TEDUGLUTIDE
     Dosage: 2 MILLIGRAM, QD (0.0300 MG/KG)
     Route: 065
     Dates: start: 20191101, end: 20191101
  16. TEDUGLUTIDE [Suspect]
     Active Substance: TEDUGLUTIDE
     Dosage: 2 MILLIGRAM, QD (0.0300 MG/KG)
     Route: 065
     Dates: start: 20191101, end: 20191101
  17. TEDUGLUTIDE [Suspect]
     Active Substance: TEDUGLUTIDE
     Dosage: 2.400 MILLIGRAM, QD (0.0400 MG/KG)
     Route: 065
     Dates: start: 20191102, end: 20191102
  18. TEDUGLUTIDE [Suspect]
     Active Substance: TEDUGLUTIDE
     Dosage: 2.400 MILLIGRAM, QD (0.0400 MG/KG)
     Route: 065
     Dates: start: 20191102, end: 20191102
  19. TEDUGLUTIDE [Suspect]
     Active Substance: TEDUGLUTIDE
     Dosage: 2.400 MILLIGRAM, QD (0.0400 MG/KG)
     Route: 065
     Dates: start: 20191102, end: 20191102
  20. TEDUGLUTIDE [Suspect]
     Active Substance: TEDUGLUTIDE
     Dosage: 2.400 MILLIGRAM, QD (0.0400 MG/KG)
     Route: 065
     Dates: start: 20191102, end: 20191102
  21. TEDUGLUTIDE [Suspect]
     Active Substance: TEDUGLUTIDE
     Dosage: 2.400 MILLIGRAM, QD (0.0400 MG/KG)
     Route: 065
     Dates: start: 20191102, end: 20191103
  22. TEDUGLUTIDE [Suspect]
     Active Substance: TEDUGLUTIDE
     Dosage: 2.400 MILLIGRAM, QD (0.0400 MG/KG)
     Route: 065
     Dates: start: 20191102, end: 20191103
  23. TEDUGLUTIDE [Suspect]
     Active Substance: TEDUGLUTIDE
     Dosage: 2.400 MILLIGRAM, QD (0.0400 MG/KG)
     Route: 065
     Dates: start: 20191102, end: 20191103
  24. TEDUGLUTIDE [Suspect]
     Active Substance: TEDUGLUTIDE
     Dosage: 2.400 MILLIGRAM, QD (0.0400 MG/KG)
     Route: 065
     Dates: start: 20191102, end: 20191103
  25. TEDUGLUTIDE [Suspect]
     Active Substance: TEDUGLUTIDE
     Dosage: 2.9 MILLIGRAM, QD (0.0400 MG/KG)
     Route: 065
     Dates: start: 20191104, end: 20191104
  26. TEDUGLUTIDE [Suspect]
     Active Substance: TEDUGLUTIDE
     Dosage: 2.9 MILLIGRAM, QD (0.0400 MG/KG)
     Route: 065
     Dates: start: 20191104, end: 20191104
  27. TEDUGLUTIDE [Suspect]
     Active Substance: TEDUGLUTIDE
     Dosage: 2.9 MILLIGRAM, QD (0.0400 MG/KG)
     Route: 065
     Dates: start: 20191104, end: 20191104
  28. TEDUGLUTIDE [Suspect]
     Active Substance: TEDUGLUTIDE
     Dosage: 2.9 MILLIGRAM, QD (0.0400 MG/KG)
     Route: 065
     Dates: start: 20191104, end: 20191104
  29. TEDUGLUTIDE [Suspect]
     Active Substance: TEDUGLUTIDE
     Dosage: 2.9 MILLIGRAM, QD (0.0400 MG/KG)
     Route: 065
     Dates: start: 20191104, end: 20191105
  30. TEDUGLUTIDE [Suspect]
     Active Substance: TEDUGLUTIDE
     Dosage: 2.9 MILLIGRAM, QD (0.0400 MG/KG)
     Route: 065
     Dates: start: 20191104, end: 20191105
  31. TEDUGLUTIDE [Suspect]
     Active Substance: TEDUGLUTIDE
     Dosage: 2.9 MILLIGRAM, QD (0.0400 MG/KG)
     Route: 065
     Dates: start: 20191104, end: 20191105
  32. TEDUGLUTIDE [Suspect]
     Active Substance: TEDUGLUTIDE
     Dosage: 2.9 MILLIGRAM, QD (0.0400 MG/KG)
     Route: 065
     Dates: start: 20191104, end: 20191105
  33. TEDUGLUTIDE [Suspect]
     Active Substance: TEDUGLUTIDE
     Dosage: 1.7 MILLIGRAM, QD (0.0500 MG/KG)
     Route: 065
     Dates: start: 20191106
  34. TEDUGLUTIDE [Suspect]
     Active Substance: TEDUGLUTIDE
     Dosage: 1.7 MILLIGRAM, QD (0.0500 MG/KG)
     Route: 065
     Dates: start: 20191106
  35. TEDUGLUTIDE [Suspect]
     Active Substance: TEDUGLUTIDE
     Dosage: 1.7 MILLIGRAM, QD (0.0500 MG/KG)
     Route: 065
     Dates: start: 20191106
  36. TEDUGLUTIDE [Suspect]
     Active Substance: TEDUGLUTIDE
     Dosage: 1.7 MILLIGRAM, QD (0.0500 MG/KG)
     Route: 065
     Dates: start: 20191106
  37. LINEZOLID [Concomitant]
     Active Substance: LINEZOLID
     Indication: Alpha haemolytic streptococcal infection
     Dosage: 600 MILLIGRAM, QD
     Route: 042
     Dates: start: 20211205, end: 20211206
  38. CEFOTAXIME [Concomitant]
     Active Substance: CEFOTAXIME SODIUM
     Indication: Alpha haemolytic streptococcal infection
     Dosage: 1 GRAM, BID
     Route: 042
     Dates: start: 20211204
  39. HUMAN RED BLOOD CELL [Concomitant]
     Active Substance: HUMAN RED BLOOD CELL
     Indication: Anaemia
     Dosage: 1 INTERNATIONAL UNIT, QD
     Route: 042
     Dates: start: 20211203, end: 20211203
  40. FUROSEMIDE [Concomitant]
     Active Substance: FUROSEMIDE
     Indication: Hypertension
     Dosage: 40 MILLIGRAM, QD
     Route: 048
     Dates: start: 20211203, end: 20211203

REACTIONS (2)
  - Alpha haemolytic streptococcal infection [Not Recovered/Not Resolved]
  - Vascular device infection [Not Recovered/Not Resolved]

NARRATIVE: CASE EVENT DATE: 20211204
